FAERS Safety Report 7360624-9 (Version None)
Quarter: 2011Q1

REPORT INFORMATION
  Report Type: 
  Country: None (occurrence: None)
  Receive Date: 20110318
  Receipt Date: 20100927
  Transmission Date: 20110831
  Serious: Yes (Hospitalization)
  Sender: FDA-Public Use
  Company Number: US-BAYER-201010368NA

PATIENT
  Sex: Female
  Weight: 83.9 kg

DRUGS (7)
  1. BENZAMYCIN [Concomitant]
  2. PENICILLIN VK [Concomitant]
  3. YASMIN [Suspect]
     Indication: ORAL CONTRACEPTION
  4. YASMIN [Suspect]
     Indication: ACNE
  5. ASPIRIN [Concomitant]
  6. YASMIN [Suspect]
     Indication: DEEP VEIN THROMBOSIS
     Route: 048
     Dates: start: 20031201, end: 20080101
  7. IBUPROFEN [Concomitant]

REACTIONS (7)
  - LOSS OF CONSCIOUSNESS [None]
  - PULMONARY EMBOLISM [None]
  - PULMONARY HYPERTENSION [None]
  - DYSPNOEA [None]
  - DEEP VEIN THROMBOSIS [None]
  - DIZZINESS [None]
  - SYNCOPE [None]
